FAERS Safety Report 6248108-2 (Version None)
Quarter: 2009Q2

REPORT INFORMATION
  Report Type: 
  Country: None (occurrence: None)
  Receive Date: 20090624
  Receipt Date: 20090624
  Transmission Date: 20091009
  Serious: Yes (Other)
  Sender: FDA-Public Use
  Company Number: None

PATIENT
  Sex: Female
  Weight: 43.0917 kg

DRUGS (4)
  1. FORTEO [Suspect]
     Indication: OSTEOPOROSIS
     Dates: start: 20080930
  2. FORTEO [Suspect]
     Indication: OSTEOPOROSIS
     Dates: start: 20090204
  3. SYNTHROID [Concomitant]
  4. ATIVAN [Concomitant]

REACTIONS (4)
  - ERYTHEMA [None]
  - RASH [None]
  - SKIN BURNING SENSATION [None]
  - SWELLING [None]
